FAERS Safety Report 8874203 (Version 1)
Quarter: 2012Q4

REPORT INFORMATION
  Report Type: 
  Country: US (occurrence: US)
  Receive Date: 20121023
  Receipt Date: 20121023
  Transmission Date: 20130627
  Serious: No
  Sender: FDA-Public Use
  Company Number: US-PFIZER INC-2012262407

PATIENT
  Age: 13 Year
  Sex: Male
  Weight: 53.52 kg

DRUGS (5)
  1. CHILDREN^S ADVIL [Suspect]
     Indication: NASOPHARYNGITIS
     Dosage: 3 teaspoons, two times a day
     Dates: start: 20121016
  2. CHILDREN^S ADVIL [Suspect]
     Indication: PYREXIA
  3. CHILDREN^S ADVIL [Suspect]
     Indication: PAIN
  4. ABILIFY [Concomitant]
     Indication: BIPOLAR DISORDER
     Dosage: UNK
  5. LITHIUM [Concomitant]
     Indication: BIPOLAR DISORDER
     Dosage: UNK

REACTIONS (1)
  - Faeces discoloured [Unknown]
